FAERS Safety Report 6311657-2 (Version None)
Quarter: 2009Q3

REPORT INFORMATION
  Report Type: 
  Country: None (occurrence: None)
  Receive Date: 20090817
  Receipt Date: 20090529
  Transmission Date: 20100115
  Serious: No
  Sender: FDA-Public Use
  Company Number: US-B.I. PHARMACEUTICALS,INC./RIDGEFIELD-2009-BP-09612BP

PATIENT
  Weight: 78.47 kg

DRUGS (3)
  1. VIRAMUNE [Suspect]
     Dates: start: 20031001
  2. EPZICOM [Concomitant]
     Dates: start: 20031001
  3. VIREAD [Concomitant]
     Dates: start: 20031001

REACTIONS (1)
  - ABDOMINAL DISTENSION [None]
